FAERS Safety Report 7016114-6 (Version None)
Quarter: 2010Q3

REPORT INFORMATION
  Report Type: 
  Country: None (occurrence: None)
  Receive Date: 20100927
  Receipt Date: 20100628
  Transmission Date: 20110219
  Serious: No
  Sender: FDA-Public Use
  Company Number: US-ASTRAZENECA-2010SE03691

PATIENT
  Age: 61 Year
  Sex: Female
  Weight: 53.1 kg

DRUGS (3)
  1. ARIMIDEX [Suspect]
     Indication: BREAST CANCER
     Route: 048
     Dates: start: 20080101, end: 20100607
  2. EFFEXOR [Concomitant]
     Indication: DEPRESSION
  3. XANAX [Concomitant]
     Indication: ANXIETY

REACTIONS (6)
  - ABASIA [None]
  - DRUG DOSE OMISSION [None]
  - DYSSTASIA [None]
  - LIPOMA [None]
  - MYALGIA [None]
  - PAIN IN EXTREMITY [None]
